FAERS Safety Report 4647310-0 (Version None)
Quarter: 2005Q2

REPORT INFORMATION
  Report Type: 
  Country: None (occurrence: None)
  Receive Date: 20050426
  Receipt Date: 20050415
  Transmission Date: 20051028
  Serious: Yes (Hospitalization)
  Sender: FDA-Public Use
  Company Number: 231468K05USA

PATIENT
  Age: 62 Year
  Sex: Female
  Weight: 44.4525 kg

DRUGS (1)
  1. REBIF [Suspect]
     Indication: MULTIPLE SCLEROSIS
     Dosage: 44 MCG, 3 IN 1 WEEKS

REACTIONS (6)
  - BLOOD POTASSIUM INCREASED [None]
  - INJECTION SITE ABSCESS [None]
  - LIVER FUNCTION TEST ABNORMAL [None]
  - MYOCARDIAL INFARCTION [None]
  - SUBCUTANEOUS ABSCESS [None]
  - WRONG TECHNIQUE IN DRUG USAGE PROCESS [None]
